FAERS Safety Report 4692283-8 (Version None)
Quarter: 2005Q2

REPORT INFORMATION
  Report Type: 
  Country: None (occurrence: None)
  Receive Date: 20050614
  Receipt Date: 20050603
  Transmission Date: 20051028
  Serious: Yes (Hospitalization)
  Sender: FDA-Public Use
  Company Number: JP2005002

PATIENT
  Age: 78 Year
  Sex: Female

DRUGS (4)
  1. GASTER D/FAMOTIDINE, ORALLY DISINTEGRATING TABLET [Suspect]
     Dosage: 40 (MG)/DAY, PO
     Route: 048
     Dates: start: 20041101, end: 20050403
  2. METHYLCOBAL/MECOBALAMIN [Concomitant]
  3. JUVELA N/TOCOPHEROL NICOTINATE [Concomitant]
  4. BONALON/ALENDRONATE SODIUM HYDRATE [Concomitant]

REACTIONS (1)
  - ANAEMIA [None]
